FAERS Safety Report 20333219 (Version 1)
Quarter: 2022Q1

REPORT INFORMATION
  Report Type: Spontaneous
  Country: US (occurrence: US)
  Receive Date: 20220113
  Receipt Date: 20220113
  Transmission Date: 20220423
  Serious: Yes (Hospitalization)
  Sender: FDA-Public Use
  Company Number: US-Fresenius Medical Care Renal Therapies Group-FMC-2201-000057

PATIENT
  Age: 84 Year
  Sex: Female
  Weight: 83.5 kg

DRUGS (3)
  1. DELFLEX WITH DEXTROSE 1.5% LOW MAGNESIUM LOW CALCIUM [Suspect]
     Active Substance: CALCIUM CHLORIDE\DEXTROSE\MAGNESIUM CHLORIDE\SODIUM CHLORIDE\SODIUM LACTATE
     Indication: End stage renal disease
     Dosage: EXCHANGES = 5, FILL VOLUME = 2500 ML, DWELL TIME = 2.0 HOURS, LAST FILL = N/A, DAYTIME DWELL = N/A.
     Route: 033
     Dates: start: 20191125
  2. DELFLEX WITH DEXTROSE 2.5% LOW MAGNESIUM LOW CALCIUM [Suspect]
     Active Substance: CALCIUM CHLORIDE\DEXTROSE\MAGNESIUM CHLORIDE\SODIUM CHLORIDE\SODIUM LACTATE
     Indication: End stage renal disease
     Dosage: EXCHANGES = 5, FILL VOLUME = 2500 ML, DWELL TIME = 2.0 HOURS, LAST FILL = N/A, DAYTIME DWELL = N/A.
     Route: 033
     Dates: start: 20191125
  3. DELFLEX WITH DEXTROSE 4.25% LOW MAGNESIUM LOW CALCIUM [Suspect]
     Active Substance: CALCIUM CHLORIDE\DEXTROSE\MAGNESIUM CHLORIDE\SODIUM CHLORIDE\SODIUM LACTATE
     Indication: End stage renal disease
     Dosage: EXCHANGES = 5, FILL VOLUME = 2500 ML, DWELL TIME = 2.0 HOURS, LAST FILL = N/A, DAYTIME DWELL = N/A.
     Route: 033
     Dates: start: 20191125

REACTIONS (3)
  - Pulmonary oedema [Recovering/Resolving]
  - Hypervolaemia [Recovering/Resolving]
  - Treatment noncompliance [Recovering/Resolving]
